FAERS Safety Report 4281246-2 (Version None)
Quarter: 2004Q1

REPORT INFORMATION
  Report Type: 
  Country: None (occurrence: None)
  Receive Date: 20040112
  Receipt Date: 20031007
  Transmission Date: 20041129
  Serious: Yes (Other)
  Sender: FDA-Public Use
  Company Number: 348717

PATIENT
  Sex: Male

DRUGS (1)
  1. FUZEON [Suspect]
     Indication: DRUG USE FOR UNKNOWN INDICATION
     Dosage: SUBCUTANEOUS
     Route: 058

REACTIONS (3)
  - ERYTHEMA [None]
  - FEELING HOT [None]
  - INJECTION SITE REACTION [None]
